FAERS Safety Report 9590582 (Version 1)
Quarter: 2013Q4

REPORT INFORMATION
  Report Type: Spontaneous
  Country: US (occurrence: US)
  Receive Date: 20131003
  Receipt Date: 20131003
  Transmission Date: 20140711
  Serious: No
  Sender: FDA-Public Use
  Company Number: US-AMGEN-USASP2012077575

PATIENT
  Age: 56 Year
  Sex: Female

DRUGS (2)
  1. ENBREL [Suspect]
     Indication: PSORIATIC ARTHROPATHY
     Dosage: 50 MG, QWK
     Dates: start: 20070505
  2. ENBREL [Suspect]
     Indication: PSORIASIS

REACTIONS (4)
  - Sinus congestion [Recovered/Resolved]
  - Sneezing [Recovered/Resolved]
  - Respiratory tract congestion [Recovered/Resolved]
  - Productive cough [Recovered/Resolved]
